FAERS Safety Report 12080946 (Version 2)
Quarter: 2016Q3

REPORT INFORMATION
  Report Type: Spontaneous
  Country: DE (occurrence: DE)
  Receive Date: 20160216
  Receipt Date: 20160824
  Transmission Date: 20161109
  Serious: Yes (Life-Threatening, Hospitalization)
  Sender: FDA-Public Use
  Company Number: DE-ASTRAZENECA-2016SE14117

PATIENT
  Age: 74 Year
  Sex: Male
  Weight: 107 kg

DRUGS (9)
  1. TAMSULOSIN [Concomitant]
     Active Substance: TAMSULOSIN
  2. EZETROL [Concomitant]
     Active Substance: EZETIMIBE
  3. JANUMET [Concomitant]
     Active Substance: METFORMIN HYDROCHLORIDE\SITAGLIPTIN PHOSPHATE
     Dosage: 2 IN 1 DAY
  4. ALLOBETA [Concomitant]
     Dosage: 300, 1 IN 1 DAY
  5. HCT VON [Concomitant]
  6. ZODIN [Concomitant]
  7. NOVONORM [Concomitant]
     Active Substance: REPAGLINIDE
  8. FORXIGA [Suspect]
     Active Substance: DAPAGLIFLOZIN
     Route: 048
  9. PROVAS COMP [Concomitant]
     Dosage: 80 MG/12.5 MG, 1 IN 1 DAY

REACTIONS (1)
  - Benign prostatic hyperplasia [Unknown]

NARRATIVE: CASE EVENT DATE: 201501
